FAERS Safety Report 7840829-0 (Version None)
Quarter: 2011Q4

REPORT INFORMATION
  Report Type: 
  Country: None (occurrence: None)
  Receive Date: 20111021
  Receipt Date: 20111021
  Transmission Date: 20120403
  Serious: Yes (Other)
  Sender: FDA-Public Use
  Company Number: None

PATIENT
  Sex: Male

DRUGS (3)
  1. RIBAPAK 600/400MG TABLET [Suspect]
  2. PEGASYS KIT [Concomitant]
  3. INCIVEK [Suspect]
     Dosage: TAKE 2 TABLETS BY MOUTH EVERY 8 HOURS
     Route: 048

REACTIONS (3)
  - DYSPNOEA [None]
  - HEADACHE [None]
  - CHEST DISCOMFORT [None]
